FAERS Safety Report 12109375 (Version 2)
Quarter: 2016Q1

REPORT INFORMATION
  Report Type: Spontaneous
  Country: AU (occurrence: AU)
  Receive Date: 20160224
  Receipt Date: 20160322
  Transmission Date: 20160526
  Serious: Yes (Death, Other)
  Sender: FDA-Public Use
  Company Number: AU-009507513-1508AUS013767

PATIENT
  Sex: Female
  Weight: 70 kg

DRUGS (4)
  1. KEYTRUDA [Suspect]
     Active Substance: PEMBROLIZUMAB
     Indication: TRIPLE NEGATIVE BREAST CANCER
     Dosage: 140 MG, Q3W
     Route: 042
     Dates: start: 20150824, end: 20150915
  2. LYRICA [Concomitant]
     Active Substance: PREGABALIN
     Indication: PAIN
     Dosage: 150 MG, BID
     Route: 048
  3. KAPANOL [Concomitant]
     Indication: PAIN
     Dosage: 40 MG, BID
     Route: 048
  4. KEYTRUDA [Suspect]
     Active Substance: PEMBROLIZUMAB
     Indication: BREAST CANCER METASTATIC

REACTIONS (5)
  - Malignant neoplasm progression [Fatal]
  - Respiratory failure [Fatal]
  - Off label use [Unknown]
  - Metastases to lung [Fatal]
  - Drug ineffective for unapproved indication [Unknown]
